FAERS Safety Report 11883462 (Version 2)
Quarter: 2016Q1

REPORT INFORMATION
  Report Type: Report from Study
  Country: AT (occurrence: AT)
  Receive Date: 20151231
  Receipt Date: 20160127
  Transmission Date: 20160526
  Serious: Yes (Hospitalization)
  Sender: FDA-Public Use
  Company Number: PHHY2015AT163160

PATIENT
  Age: 26 Year
  Sex: Female
  Weight: 59 kg

DRUGS (7)
  1. FORTECORTIN [Concomitant]
     Active Substance: DEXAMETHASONE
     Indication: PRODUCT USED FOR UNKNOWN INDICATION
     Dosage: 4 MG, (1-1/2-1/2-0)
     Route: 065
  2. EXEMESTAN [Concomitant]
     Active Substance: EXEMESTANE
     Indication: PRODUCT USED FOR UNKNOWN INDICATION
     Dosage: 25 MG, QD
     Route: 065
     Dates: start: 20150919
  3. AFINITOR [Suspect]
     Active Substance: EVEROLIMUS
     Indication: BREAST CANCER
     Dosage: 5 MG, QD
     Route: 065
     Dates: start: 20150919, end: 20151113
  4. EUTHYROX [Concomitant]
     Active Substance: LEVOTHYROXINE SODIUM
     Indication: PRODUCT USED FOR UNKNOWN INDICATION
     Dosage: 25 UG, QD
     Route: 065
  5. LANSOPRAZOL [Concomitant]
     Active Substance: LANSOPRAZOLE
     Indication: PRODUCT USED FOR UNKNOWN INDICATION
     Dosage: 30 MG, QD
     Route: 065
  6. CYMBALTA [Concomitant]
     Active Substance: DULOXETINE HYDROCHLORIDE
     Indication: PRODUCT USED FOR UNKNOWN INDICATION
     Dosage: 30 MG, QD
     Route: 065
  7. PANTOLOC//PANTOPRAZOLE SODIUM SESQUIHYDRATE [Concomitant]
     Active Substance: PANTOPRAZOLE SODIUM
     Indication: PRODUCT USED FOR UNKNOWN INDICATION
     Dosage: 40 MG, QD
     Route: 065

REACTIONS (19)
  - Lip swelling [Recovered/Resolved]
  - Disturbance in attention [Unknown]
  - Speech disorder [Unknown]
  - Blood pressure systolic increased [Unknown]
  - Acne [Unknown]
  - Pain [Recovering/Resolving]
  - Headache [Recovering/Resolving]
  - Cerebral disorder [Unknown]
  - Amnesia [Unknown]
  - Sleep disorder [Not Recovered/Not Resolved]
  - Hypothyroidism [Unknown]
  - Vertigo [Recovering/Resolving]
  - Confusional state [Unknown]
  - Intervertebral disc protrusion [Unknown]
  - Heart rate increased [Unknown]
  - Skin disorder [Unknown]
  - Vomiting [Recovering/Resolving]
  - Blood prolactin increased [Unknown]
  - Metastases to central nervous system [Unknown]

NARRATIVE: CASE EVENT DATE: 2015
